FAERS Safety Report 5920110-7 (Version None)
Quarter: 2008Q4

REPORT INFORMATION
  Report Type: 
  Country: None (occurrence: None)
  Receive Date: 20081015
  Receipt Date: 20081015
  Transmission Date: 20090506
  Serious: No
  Sender: FDA-Public Use
  Company Number: None

PATIENT
  Sex: Female
  Weight: 58.5 kg

DRUGS (2)
  1. NAMENDA [Suspect]
     Dosage: 330 MG
     Dates: start: 20080908
  2. DECADRON [Concomitant]

REACTIONS (5)
  - CONFUSIONAL STATE [None]
  - HYPOPHAGIA [None]
  - MENTAL STATUS CHANGES [None]
  - ORAL CANDIDIASIS [None]
  - PNEUMONIA [None]
